FAERS Safety Report 9445512 (Version 1)
Quarter: 2013Q3

REPORT INFORMATION
  Report Type: Spontaneous
  Country: US (occurrence: None)
  Receive Date: 20130802
  Receipt Date: 20130802
  Transmission Date: 20140515
  Serious: Yes (Other)
  Sender: FDA-Public Use
  Company Number: USA/USA/13/0032690

PATIENT
  Sex: Male

DRUGS (1)
  1. ZENATANE [Suspect]
     Indication: PRODUCT USED FOR UNKNOWN INDICATION
     Dosage: STOPPED
     Dates: start: 20130614

REACTIONS (6)
  - Erectile dysfunction [None]
  - Apathy [None]
  - Fatigue [None]
  - Back pain [None]
  - Depression [None]
  - Urethral disorder [None]
